FAERS Safety Report 8103948-X (Version None)
Quarter: 2012Q1

REPORT INFORMATION
  Report Type: 
  Country: None (occurrence: None)
  Receive Date: 20120201
  Receipt Date: 20120126
  Transmission Date: 20120608
  Serious: Yes (Death, Other)
  Sender: FDA-Public Use
  Company Number: IT-CELGENEUS-083-21880-11111860

PATIENT
  Sex: Male

DRUGS (6)
  1. PREDNISONE TAB [Suspect]
     Indication: MULTIPLE MYELOMA
     Dosage: MG/KG
     Route: 065
     Dates: start: 20051024
  2. MELPHALAN HYDROCHLORIDE [Suspect]
     Indication: MULTIPLE MYELOMA
     Dosage: MG/KG
     Route: 065
     Dates: start: 20051024
  3. THALIDOMIDE [Concomitant]
     Indication: MULTIPLE MYELOMA
     Route: 048
     Dates: start: 20070915, end: 20090415
  4. REVLIMID [Suspect]
     Indication: MULTIPLE MYELOMA
     Dosage: 10 MILLIGRAM
     Route: 048
     Dates: start: 20051024, end: 20060328
  5. MELPHALAN HYDROCHLORIDE [Suspect]
     Dosage: MG/KG
     Route: 065
     Dates: start: 20060326, end: 20060328
  6. PREDNISONE TAB [Suspect]
     Dosage: MG/KG
     Route: 065
     Dates: start: 20060326, end: 20060328

REACTIONS (1)
  - LUNG NEOPLASM MALIGNANT [None]
